FAERS Safety Report 10928505 (Version 1)
Quarter: 2015Q1

REPORT INFORMATION
  Report Type: Spontaneous
  Country: US (occurrence: None)
  Receive Date: 20150318
  Receipt Date: 20150318
  Transmission Date: 20150721
  Serious: Yes (Hospitalization)
  Sender: FDA-Public Use
  Company Number: None

PATIENT
  Age: 71 Year
  Sex: Female
  Weight: 64.41 kg

DRUGS (11)
  1. LOPERAMIDE [Concomitant]
     Active Substance: LOPERAMIDE
  2. LOVENOX [Concomitant]
     Active Substance: ENOXAPARIN SODIUM
  3. NEURONTIN [Suspect]
     Active Substance: GABAPENTIN
     Indication: NEURALGIA
     Dosage: 2CAP. 3X DAILY MOUTH
     Route: 048
     Dates: start: 20140323, end: 20140406
  4. BUSPIRONE [Concomitant]
     Active Substance: BUSPIRONE HYDROCHLORIDE
  5. FIBERCON [Concomitant]
     Active Substance: CALCIUM POLYCARBOPHIL
  6. LEVOTHYROXINE [Concomitant]
     Active Substance: LEVOTHYROXINE
  7. VITAMIN B12 [Concomitant]
     Active Substance: CYANOCOBALAMIN
  8. NEURONTIN [Suspect]
     Active Substance: GABAPENTIN
     Indication: POST PROCEDURAL COMPLICATION
     Dosage: 2CAP. 3X DAILY MOUTH
     Route: 048
     Dates: start: 20140323, end: 20140406
  9. LOW DOSE ASPIRIN [Concomitant]
     Active Substance: ASPIRIN
  10. LOMOTIL [Concomitant]
     Active Substance: ATROPINE SULFATE\DIPHENOXYLATE HYDROCHLORIDE
  11. MAGNESIUM OXIDE. [Concomitant]
     Active Substance: MAGNESIUM OXIDE

REACTIONS (9)
  - Dizziness [None]
  - Blood sodium decreased [None]
  - Syncope [None]
  - Decreased appetite [None]
  - Dehydration [None]
  - Blood potassium abnormal [None]
  - Coordination abnormal [None]
  - Urine output decreased [None]
  - Ill-defined disorder [None]

NARRATIVE: CASE EVENT DATE: 201403
